FAERS Safety Report 9349068 (Version 2)
Quarter: 2013Q3

REPORT INFORMATION
  Report Type: Spontaneous
  Country: US (occurrence: US)
  Receive Date: 20130614
  Receipt Date: 20130813
  Transmission Date: 20140515
  Serious: No
  Sender: FDA-Public Use
  Company Number: US-PFIZER INC-2013175764

PATIENT
  Age: 67 Year
  Sex: Female
  Weight: 86.17 kg

DRUGS (16)
  1. ZYVOX [Suspect]
     Indication: GINGIVITIS
     Dosage: 600 MG, 2X/DAY
     Route: 048
     Dates: start: 20130605, end: 20130609
  2. ZYVOX [Suspect]
     Indication: TOOTH ABSCESS
  3. ZYVOX [Suspect]
     Indication: ABSCESS JAW
  4. METFORMIN [Concomitant]
     Dosage: 2000 MG, UNK
  5. LASIX [Concomitant]
     Dosage: 80 MG, UNK
  6. POTASSIUM CHLORIDE [Concomitant]
     Dosage: 40 MG, UNK
  7. LOSARTAN [Concomitant]
     Dosage: 50 MG, 1X/DAY (DAILY)
  8. POTASSIUM [Concomitant]
     Indication: ABDOMINAL DISCOMFORT
     Dosage: 10 MG, UNK
  9. CETIRIZINE [Concomitant]
     Dosage: 10 MG, 1X/DAY (DAILY)
  10. ASPIRIN [Concomitant]
     Dosage: 81 MG, UNK
  11. ALLOPURINOL [Concomitant]
     Dosage: 300 MG, UNK
  12. SINGULAIR [Concomitant]
     Dosage: 10 MG, UNK
  13. ADVAIR DISKUS [Concomitant]
     Dosage: 250/50 MCG
  14. FLUTICASONE [Concomitant]
     Dosage: UNK
     Route: 045
  15. LEVEMIR [Concomitant]
     Dosage: 60 IU, UNK
  16. NOVOLOG [Concomitant]
     Dosage: 60 MG, UNK

REACTIONS (5)
  - Nausea [Recovered/Resolved]
  - Vomiting [Recovered/Resolved]
  - Dyspepsia [Recovered/Resolved]
  - Malaise [Recovered/Resolved]
  - Off label use [Unknown]
